FAERS Safety Report 16094233 (Version 2)
Quarter: 2019Q1

REPORT INFORMATION
  Report Type: Spontaneous
  Country: FR (occurrence: FR)
  Receive Date: 20190320
  Receipt Date: 20190328
  Transmission Date: 20190418
  Serious: Yes (Hospitalization, Other)
  Sender: FDA-Public Use
  Company Number: FR-AUROBINDO-AUR-APL-2019-014856

PATIENT

DRUGS (3)
  1. AMIODARONE [Suspect]
     Active Substance: AMIODARONE
     Indication: PRODUCT USED FOR UNKNOWN INDICATION
     Dosage: UNK
     Route: 065
  2. AMIODARONE [Suspect]
     Active Substance: AMIODARONE
     Indication: ARRHYTHMIA
  3. AMIODARONE [Suspect]
     Active Substance: AMIODARONE
     Indication: VENTRICULAR EXTRASYSTOLES

REACTIONS (4)
  - Hypothyroidism [Unknown]
  - Foetal disorder [Unknown]
  - Foetal exposure during pregnancy [Unknown]
  - Bradycardia foetal [Unknown]
